FAERS Safety Report 4932913-6 (Version None)
Quarter: 2006Q1

REPORT INFORMATION
  Report Type: 
  Country: None (occurrence: None)
  Receive Date: 20060301
  Receipt Date: 20060221
  Transmission Date: 20060701
  Serious: Yes (Death)
  Sender: FDA-Public Use
  Company Number: USA-2005-0022055

PATIENT
  Age: 42 Year
  Sex: Male

DRUGS (1)
  1. MORPHINE SULFATE [Suspect]

REACTIONS (5)
  - BRAIN CONTUSION [None]
  - HAEMOPHILIA [None]
  - HEAD INJURY [None]
  - NARCOTIC INTOXICATION [None]
  - SUBDURAL HAEMATOMA [None]
